FAERS Safety Report 22656105 (Version 1)
Quarter: 2023Q2

REPORT INFORMATION
  Report Type: Spontaneous
  Country: US (occurrence: US)
  Receive Date: 20230629
  Receipt Date: 20230629
  Transmission Date: 20230721
  Serious: Yes (Hospitalization, Other)
  Sender: FDA-Public Use
  Company Number: US-FreseniusKabi-FK202309660

PATIENT
  Age: 63 Year
  Sex: Female

DRUGS (3)
  1. METOPROLOL TARTRATE [Suspect]
     Active Substance: METOPROLOL TARTRATE
     Indication: Suicide attempt
  2. GLUCAGON [Suspect]
     Active Substance: GLUCAGON
     Indication: Hypertension
  3. METHYLENE BLUE [Concomitant]
     Active Substance: METHYLENE BLUE
     Indication: Hypertension

REACTIONS (3)
  - Suicide attempt [Unknown]
  - Overdose [Unknown]
  - Cardiogenic shock [Unknown]
